FAERS Safety Report 14919112 (Version 1)
Quarter: 2018Q2

REPORT INFORMATION
  Report Type: Report from Study
  Country: EG (occurrence: EG)
  Receive Date: 20180521
  Receipt Date: 20180521
  Transmission Date: 20180711
  Serious: Yes (Death, Other)
  Sender: FDA-Public Use
  Company Number: EG-ROCHE-2121074

PATIENT

DRUGS (3)
  1. DACLATASVIR. [Suspect]
     Active Substance: DACLATASVIR
     Indication: CHRONIC HEPATITIS C
     Dosage: DURATION: 12 WEEKS/24 WEEKS
     Route: 065
  2. SOFOSBUVIR [Suspect]
     Active Substance: SOFOSBUVIR
     Indication: CHRONIC HEPATITIS C
     Dosage: DURATION: 12 WEEKS/24 WEEKS
     Route: 065
  3. RIBAVIRIN. [Suspect]
     Active Substance: RIBAVIRIN
     Indication: CHRONIC HEPATITIS C
     Dosage: PATIENT WITH 75 KG: 1000 MG/DAY AND }/=75 KG 1200 MG/DAY WITH STARTING DOSE 600 MG IN TWO DIVIDED DO
     Route: 065

REACTIONS (26)
  - Cough [Unknown]
  - Asthenia [Unknown]
  - Hepatocellular carcinoma [Unknown]
  - Abdominal discomfort [Unknown]
  - Dyspnoea [Unknown]
  - Pruritus [Unknown]
  - Neutropenia [Unknown]
  - Renal impairment [Unknown]
  - Portal vein thrombosis [Unknown]
  - Pancreatic carcinoma [Unknown]
  - Dry mouth [Unknown]
  - Fatigue [Unknown]
  - Hypoalbuminaemia [Unknown]
  - Haemorrhage [Unknown]
  - Ascites [Unknown]
  - Pleural effusion [Unknown]
  - Blood glucose fluctuation [Unknown]
  - Headache [Unknown]
  - Death [Fatal]
  - Pericardial effusion [Unknown]
  - Anaemia [Unknown]
  - Hepatic failure [Fatal]
  - Hyperbilirubinaemia [Unknown]
  - Thrombocytopenia [Unknown]
  - Pneumonia [Unknown]
  - Hepatic encephalopathy [Unknown]
